FAERS Safety Report 9860996 (Version 2)
Quarter: 2014Q1

REPORT INFORMATION
  Report Type: Spontaneous
  Country: US (occurrence: US)
  Receive Date: 20140202
  Receipt Date: 20140202
  Transmission Date: 20141002
  Serious: No
  Sender: FDA-Public Use
  Company Number: US-ALLERGAN-1303064US

PATIENT
  Age: 59 Year
  Sex: Female

DRUGS (2)
  1. BOTOX COSMETIC [Suspect]
     Indication: SKIN WRINKLING
     Dosage: 37 UNITS, SINGLE
     Route: 030
     Dates: start: 20130206, end: 20130206
  2. BOTOX COSMETIC [Suspect]
     Indication: SKIN WRINKLING

REACTIONS (4)
  - Dizziness [Recovered/Resolved]
  - Disturbance in attention [Recovering/Resolving]
  - Headache [Recovered/Resolved]
  - Tinnitus [Recovered/Resolved]
